FAERS Safety Report 15819578 (Version 1)
Quarter: 2019Q1

REPORT INFORMATION
  Report Type: Report from Study
  Country: US (occurrence: US)
  Receive Date: 20190114
  Receipt Date: 20190114
  Transmission Date: 20190417
  Serious: Yes (Other)
  Sender: FDA-Public Use
  Company Number: US-TEVA-2019-US-996202

PATIENT
  Sex: Male

DRUGS (3)
  1. AUSTEDO [Suspect]
     Active Substance: DEUTETRABENAZINE
     Dosage: 6 MILLIGRAM DAILY;
     Route: 065
  2. AUSTEDO [Suspect]
     Active Substance: DEUTETRABENAZINE
     Route: 065
     Dates: start: 20171016, end: 20180301
  3. AUSTEDO [Suspect]
     Active Substance: DEUTETRABENAZINE
     Indication: TARDIVE DYSKINESIA
     Dosage: NEW TITRATING PATIENT
     Route: 065
     Dates: start: 20180401

REACTIONS (3)
  - Dementia [Unknown]
  - Amnesia [Unknown]
  - Memory impairment [Unknown]
